FAERS Safety Report 6604235-9 (Version None)
Quarter: 2010Q1

REPORT INFORMATION
  Report Type: 
  Country: None (occurrence: None)
  Receive Date: 20100226
  Receipt Date: 20090806
  Transmission Date: 20100710
  Serious: No
  Sender: FDA-Public Use
  Company Number: A0797120A

PATIENT
  Age: 53 Year
  Sex: Female

DRUGS (7)
  1. LAMOTRIGINE [Suspect]
     Dosage: 100MG PER DAY
     Route: 048
     Dates: start: 20090301, end: 20090701
  2. LAMICTAL CD [Suspect]
     Dosage: 100MG PER DAY
     Route: 048
     Dates: start: 20090701
  3. EFFEXOR [Concomitant]
  4. THYROID TAB [Concomitant]
  5. ESTROGEN [Concomitant]
  6. VITAMIN TAB [Concomitant]
  7. MINERAL SUPPLEMENT [Concomitant]

REACTIONS (3)
  - ARTHRALGIA [None]
  - BACK PAIN [None]
  - NECK PAIN [None]
